FAERS Safety Report 26080531 (Version 1)
Quarter: 2025Q4

REPORT INFORMATION
  Report Type: Spontaneous
  Country: US (occurrence: US)
  Receive Date: 20251124
  Receipt Date: 20251124
  Transmission Date: 20260119
  Serious: No
  Sender: LEO PHARM
  Company Number: US-LEO Pharma-384401

PATIENT
  Age: 31 Year
  Sex: Female

DRUGS (1)
  1. ADBRY [Suspect]
     Active Substance: TRALOKINUMAB-LDRM
     Indication: Dermatitis atopic
     Dosage: TREATMENT IS ONGOING
     Route: 058

REACTIONS (5)
  - Eye irritation [Unknown]
  - Asthma [Unknown]
  - Vision blurred [Unknown]
  - Eye pruritus [Unknown]
  - Ocular hyperaemia [Unknown]
